FAERS Safety Report 17097695 (Version 3)
Quarter: 2020Q2

REPORT INFORMATION
  Report Type: Report from Study
  Country: KR (occurrence: KR)
  Receive Date: 20191202
  Receipt Date: 20200402
  Transmission Date: 20200713
  Serious: Yes (Death, Other)
  Sender: FDA-Public Use
  Company Number: KR-ACTELION-A-CH2019-198493

PATIENT
  Age: 64 Year
  Sex: Male
  Weight: 51 kg

DRUGS (9)
  1. UPTRAVI [Suspect]
     Active Substance: SELEXIPAG
     Dosage: 800 ?G, QD
     Route: 048
     Dates: start: 20191011, end: 20191013
  2. AMBRISENTAN [Concomitant]
     Active Substance: AMBRISENTAN
     Indication: PULMONARY ARTERIAL HYPERTENSION
     Dosage: 10 MG, QD
     Route: 048
     Dates: start: 20171107, end: 201911
  3. UPTRAVI [Suspect]
     Active Substance: SELEXIPAG
     Dosage: 400 ?G, QD
     Route: 048
     Dates: start: 20191024, end: 201911
  4. UPTRAVI [Suspect]
     Active Substance: SELEXIPAG
     Dosage: 400?G AM, 600 ?G PM
     Route: 048
     Dates: start: 20191010, end: 20191010
  5. UPTRAVI [Suspect]
     Active Substance: SELEXIPAG
     Dosage: 400 ?G, QD
     Route: 048
     Dates: start: 20190926, end: 20191009
  6. SILDENAFIL. [Concomitant]
     Active Substance: SILDENAFIL
     Indication: PULMONARY ARTERIAL HYPERTENSION
     Dosage: 60 MG, QD
     Route: 048
     Dates: start: 20181025, end: 201911
  7. UPTRAVI [Suspect]
     Active Substance: SELEXIPAG
     Dosage: 400 ?G, QD
     Route: 048
     Dates: start: 20191014, end: 20191014
  8. UPTRAVI [Suspect]
     Active Substance: SELEXIPAG
     Indication: PULMONARY ARTERIAL HYPERTENSION
     Dosage: 200 ?G, PM
     Route: 048
     Dates: start: 20190925, end: 20190925
  9. UPTRAVI [Suspect]
     Active Substance: SELEXIPAG
     Dosage: 200 ?G, PM
     Route: 048
     Dates: start: 20191023, end: 20191023

REACTIONS (6)
  - Right ventricular failure [Fatal]
  - Headache [Unknown]
  - Rash [Unknown]
  - Pulmonary hypertension [Fatal]
  - N-terminal prohormone brain natriuretic peptide increased [Unknown]
  - Myalgia [Unknown]

NARRATIVE: CASE EVENT DATE: 201910
